FAERS Safety Report 9786461 (Version 2)
Quarter: 2014Q1

REPORT INFORMATION
  Report Type: Spontaneous
  Country: US (occurrence: US)
  Receive Date: 20131227
  Receipt Date: 20140224
  Transmission Date: 20141002
  Serious: Yes (Other)
  Sender: FDA-Public Use
  Company Number: US-BRISTOL-MYERS SQUIBB COMPANY-19947100

PATIENT
  Age: 57 Year
  Sex: Female
  Weight: 72.3 kg

DRUGS (3)
  1. ABILIFY [Suspect]
     Route: 048
     Dates: start: 20131216
  2. ABILIFY MAINTENA INJECTION [Suspect]
     Indication: SCHIZOAFFECTIVE DISORDER
     Dates: start: 20131209, end: 20131209
  3. COGENTIN [Concomitant]
     Route: 048

REACTIONS (4)
  - Lip swelling [Recovered/Resolved]
  - Swollen tongue [Recovered/Resolved]
  - Oedema peripheral [Recovered/Resolved]
  - Generalised oedema [Recovered/Resolved]
